FAERS Safety Report 14661745 (Version 1)
Quarter: 2018Q1

REPORT INFORMATION
  Report Type: Spontaneous
  Country: US (occurrence: US)
  Receive Date: 20180318
  Receipt Date: 20180318
  Transmission Date: 20180509
  Serious: Yes (Death)
  Sender: FDA-Public Use
  Company Number: None

PATIENT
  Age: 68 Year
  Sex: Female

DRUGS (1)
  1. OCTREOTIDE. [Suspect]
     Active Substance: OCTREOTIDE
     Indication: GASTROINTESTINAL ANGIODYSPLASIA
     Route: 058

REACTIONS (1)
  - Death [None]

NARRATIVE: CASE EVENT DATE: 20180314
